FAERS Safety Report 8234292-8 (Version None)
Quarter: 2012Q1

REPORT INFORMATION
  Report Type: 
  Country: None (occurrence: None)
  Receive Date: 20120326
  Receipt Date: 20120316
  Transmission Date: 20120608
  Serious: Yes (Death)
  Sender: FDA-Public Use
  Company Number: US-PURDUE-USA-2012-0083337

PATIENT
  Age: 36 Year
  Sex: Male

DRUGS (2)
  1. BUTRANS [Suspect]
     Indication: MUSCULOSKELETAL PAIN
     Dosage: 10 MCG/HR, DAILY
     Route: 062
     Dates: start: 20120217, end: 20120301
  2. BUTRANS [Suspect]
     Dosage: 5 MCG/HR, DAILY
     Route: 062
     Dates: start: 20120113, end: 20120201

REACTIONS (1)
  - DEATH [None]
